FAERS Safety Report 13650764 (Version 1)
Quarter: 2017Q2

REPORT INFORMATION
  Report Type: Spontaneous
  Country: US (occurrence: US)
  Receive Date: 20170614
  Receipt Date: 20170614
  Transmission Date: 20170830
  Serious: No
  Sender: FDA-Public Use
  Company Number: US-ENDO PHARMACEUTICALS INC-2017-002656

PATIENT
  Age: 14 Year
  Sex: Female
  Weight: 48.07 kg

DRUGS (5)
  1. SUPPRELIN LA [Suspect]
     Active Substance: HISTRELIN ACETATE
     Indication: GENDER DYSPHORIA
     Dosage: ONE IMPLANT INSERTED IN LEFT UPPER ARM
     Route: 065
     Dates: start: 20170303, end: 20170421
  2. ZOLOFT [Concomitant]
     Active Substance: SERTRALINE HYDROCHLORIDE
     Indication: DEPRESSION
  3. ZYRTEC                             /00884302/ [Concomitant]
     Indication: HYPERSENSITIVITY
  4. ETONOGESTREL [Concomitant]
     Active Substance: ETONOGESTREL
     Indication: PRODUCT USED FOR UNKNOWN INDICATION
  5. LUPRON [Concomitant]
     Active Substance: LEUPROLIDE ACETATE
     Indication: PRODUCT USED FOR UNKNOWN INDICATION

REACTIONS (6)
  - Off label use [Recovered/Resolved]
  - Device expulsion [Recovered/Resolved]
  - Scab [Unknown]
  - Application site granuloma [Unknown]
  - Product quality issue [Unknown]
  - Implant site abscess [Unknown]

NARRATIVE: CASE EVENT DATE: 2017
